FAERS Safety Report 9639652 (Version 2)
Quarter: 2013Q4

REPORT INFORMATION
  Report Type: Spontaneous
  Country: US (occurrence: US)
  Receive Date: 20131023
  Receipt Date: 20131120
  Transmission Date: 20140711
  Serious: No
  Sender: FDA-Public Use
  Company Number: US-009507513-1310USA006944

PATIENT
  Sex: Male

DRUGS (3)
  1. PEGINTRON [Suspect]
     Indication: NEOPLASM MALIGNANT
     Dosage: 90 MICROGRAM, WEEKLY
     Route: 058
  2. BETADINE [Concomitant]
  3. AMOXICILLIN [Concomitant]

REACTIONS (3)
  - Rash [Unknown]
  - Dizziness [Unknown]
  - Off label use [Unknown]
